FAERS Safety Report 22324556 (Version 1)
Quarter: 2023Q2

REPORT INFORMATION
  Report Type: Spontaneous
  Country: US (occurrence: None)
  Receive Date: 20230513
  Receipt Date: 20230513
  Transmission Date: 20230721
  Serious: Yes (Hospitalization)
  Sender: FDA-Public Use
  Company Number: None

PATIENT
  Age: 53 Year
  Sex: Male
  Weight: 74.25 kg

DRUGS (1)
  1. .DELTA.8-TETRAHYDROCANNABINOL\HERBALS [Suspect]
     Active Substance: .DELTA.8-TETRAHYDROCANNABINOL\HERBALS
     Indication: Back pain
     Route: 048
     Dates: start: 20230505, end: 20230505

REACTIONS (10)
  - Substance use [None]
  - Drug interaction [None]
  - Dizziness [None]
  - Hallucination [None]
  - Tremor [None]
  - Headache [None]
  - Confusional state [None]
  - Amnesia [None]
  - Drug dependence [None]
  - Drug screen false positive [None]

NARRATIVE: CASE EVENT DATE: 20230505
